FAERS Safety Report 22176229 (Version 2)
Quarter: 2023Q2

REPORT INFORMATION
  Report Type: Spontaneous
  Country: US (occurrence: None)
  Receive Date: 20230405
  Receipt Date: 20230508
  Transmission Date: 20230722
  Serious: No
  Sender: FDA-Public Use
  Company Number: 2023A063472

PATIENT

DRUGS (2)
  1. BYDUREON BCISE [Suspect]
     Active Substance: EXENATIDE
     Route: 058
  2. INSULIN NOS [Concomitant]
     Active Substance: INSULIN NOS

REACTIONS (6)
  - Urticaria [Unknown]
  - Hypersensitivity [Unknown]
  - Injection site pruritus [Unknown]
  - Device malfunction [Unknown]
  - Product dose omission issue [Unknown]
  - Device defective [Unknown]
